FAERS Safety Report 18572141 (Version 1)
Quarter: 2020Q4

REPORT INFORMATION
  Report Type: Spontaneous
  Country: US (occurrence: US)
  Receive Date: 20201202
  Receipt Date: 20201202
  Transmission Date: 20210114
  Serious: No
  Sender: FDA-Public Use
  Company Number: US-ASCEND THERAPEUTICS US, LLC-2096586

PATIENT
  Age: 52 Year
  Sex: Female
  Weight: 79.55 kg

DRUGS (7)
  1. ESTROGEL [Suspect]
     Active Substance: ESTRADIOL
     Indication: HORMONE REPLACEMENT THERAPY
     Route: 062
     Dates: start: 20200818, end: 20201018
  2. AMLODIPINE [Concomitant]
     Active Substance: AMLODIPINE BESYLATE
     Route: 048
  3. ESTROGEL [Suspect]
     Active Substance: ESTRADIOL
     Route: 062
     Dates: start: 20201108
  4. TESTOSTERONE. [Concomitant]
     Active Substance: TESTOSTERONE
     Route: 048
  5. ESTROGEL [Suspect]
     Active Substance: ESTRADIOL
     Route: 062
     Dates: start: 20201109
  6. PROGESTERONE. [Concomitant]
     Active Substance: PROGESTERONE
     Route: 048
  7. ESTROGEL [Suspect]
     Active Substance: ESTRADIOL

REACTIONS (3)
  - Product dose omission issue [None]
  - Off label use [None]
  - Product prescribing issue [None]

NARRATIVE: CASE EVENT DATE: 20201018
